FAERS Safety Report 8791864 (Version 2)
Quarter: 2012Q4

REPORT INFORMATION
  Report Type: 
  Country: PR (occurrence: PR)
  Receive Date: 20120918
  Receipt Date: 20121024
  Transmission Date: 20130627
  Serious: Yes (Hospitalization, Other)
  Sender: FDA-Public Use
  Company Number: PR-BAYER-2012-095066

PATIENT
  Age: 58 Year
  Sex: Male
  Weight: 72.56 kg

DRUGS (3)
  1. NEXAVAR [Suspect]
     Indication: MALIGNANT NEOPLASM OF LIVER, PRIMARY
     Dosage: 400 mg, BID
     Route: 048
     Dates: start: 201206
  2. NEXAVAR [Suspect]
     Indication: MALIGNANT NEOPLASM OF LIVER, PRIMARY
  3. PERCOCET [Suspect]
     Dosage: 2 DF, Q4HR
     Route: 048

REACTIONS (5)
  - Hospitalisation [None]
  - Drug dependence [None]
  - Pain [None]
  - Asthenia [None]
  - Malaise [None]
